FAERS Safety Report 16015631 (Version 1)
Quarter: 2019Q1

REPORT INFORMATION
  Report Type: Spontaneous
  Country: FR (occurrence: FR)
  Receive Date: 20190228
  Receipt Date: 20190228
  Transmission Date: 20190418
  Serious: Yes (Life-Threatening, Hospitalization)
  Sender: FDA-Public Use
  Company Number: FR-TEVA-2019-FR-1017098

PATIENT
  Age: 81 Year
  Sex: Male
  Weight: 66 kg

DRUGS (5)
  1. VERSATIS 5 %, EMPL?TRE M?DICAMENTEUX [Concomitant]
     Active Substance: LIDOCAINE
     Route: 003
     Dates: start: 20190107
  2. ETOPOSIDE TEVA 200 MG/10 ML, SOLUTION INJECTABLE POUR PERFUSION [Suspect]
     Active Substance: ETOPOSIDE
     Indication: SMALL CELL LUNG CANCER
     Dosage: CYCLE J1-J2-J3 AVEC J1=J22
     Route: 042
     Dates: start: 20190109, end: 20190111
  3. CARBOPLATINE ACCORD 10 MG/ML, SOLUTION POUR PERFUSION [Suspect]
     Active Substance: CARBOPLATIN
     Indication: SMALL CELL LUNG CANCER
     Route: 042
     Dates: start: 20190109, end: 20190109
  4. DUROGESIC [Concomitant]
     Active Substance: FENTANYL
     Route: 048
  5. SOLUPRED [Concomitant]
     Route: 048

REACTIONS (2)
  - Pancytopenia [Recovering/Resolving]
  - Septic shock [Recovered/Resolved]

NARRATIVE: CASE EVENT DATE: 20190120
